FAERS Safety Report 5730281-3 (Version None)
Quarter: 2008Q2

REPORT INFORMATION
  Report Type: 
  Country: None (occurrence: None)
  Receive Date: 20080505
  Receipt Date: 20080505
  Transmission Date: 20081010
  Serious: No
  Sender: FDA-Public Use
  Company Number: None

PATIENT
  Age: 71 Year
  Sex: Male
  Weight: 90.7194 kg

DRUGS (1)
  1. DIGITEK 0.25MG ??????? [Suspect]
     Indication: AORTIC VALVE REPLACEMENT
     Dosage: 0.25MG ONCE A DAY PO
     Route: 048
     Dates: start: 20070527, end: 20080220

REACTIONS (2)
  - DIZZINESS [None]
  - PHARMACEUTICAL PRODUCT COMPLAINT [None]
